FAERS Safety Report 6124770-X (Version None)
Quarter: 2009Q1

REPORT INFORMATION
  Report Type: 
  Country: None (occurrence: None)
  Receive Date: 20090319
  Receipt Date: 20090317
  Transmission Date: 20090719
  Serious: Yes (Other)
  Sender: FDA-Public Use
  Company Number: US-GENENTECH-276408

PATIENT
  Sex: Female

DRUGS (8)
  1. AVASTIN [Suspect]
     Indication: DRUG USE FOR UNKNOWN INDICATION
     Dosage: 0.05 UNK, 1/MONTH
     Route: 031
     Dates: start: 20081110, end: 20090126
  2. VIGAMOX [Concomitant]
     Indication: DRUG USE FOR UNKNOWN INDICATION
     Dosage: 1 GTT, SINGLE
     Route: 047
     Dates: start: 20090126, end: 20090126
  3. VIGAMOX [Concomitant]
     Dosage: UNK
     Route: 047
     Dates: start: 20090126
  4. PATANOL [Concomitant]
     Indication: DRUG USE FOR UNKNOWN INDICATION
     Dosage: UNK
  5. REFRESH EYE DROPS (UNK INGREDIENTS) [Concomitant]
     Indication: DRUG USE FOR UNKNOWN INDICATION
     Dosage: UNK
  6. MYDRIACYL [Concomitant]
     Indication: MYDRIASIS
     Dosage: UNK
     Route: 047
     Dates: start: 20090126, end: 20090126
  7. NEO-SYNEPHRINE EYE DROPS [Concomitant]
     Indication: MYDRIASIS
     Dosage: UNK
     Route: 047
     Dates: start: 20090126, end: 20090126
  8. BETADINE [Concomitant]
     Indication: DRUG USE FOR UNKNOWN INDICATION
     Dosage: UNK
     Dates: start: 20090126, end: 20090126

REACTIONS (1)
  - ENDOPHTHALMITIS [None]
